FAERS Safety Report 8598065-9 (Version None)
Quarter: 2012Q3

REPORT INFORMATION
  Report Type: 
  Country: None (occurrence: None)
  Receive Date: 20120802
  Receipt Date: 20120727
  Transmission Date: 20120928
  Serious: Yes (Hospitalization)
  Sender: FDA-Public Use
  Company Number: 137119

PATIENT
  Age: 35 Year
  Sex: Male

DRUGS (1)
  1. DAUNORUBICIN HCL [Suspect]
     Indication: ACUTE MYELOID LEUKAEMIA
     Dosage: 429MG TOTAL/IV
     Route: 042
     Dates: start: 20120603

REACTIONS (15)
  - NECROTISING COLITIS [None]
  - MUCOSAL INFLAMMATION [None]
  - PYREXIA [None]
  - DEHYDRATION [None]
  - ARTHRALGIA [None]
  - HYPOTENSION [None]
  - FLUID INTAKE REDUCED [None]
  - RENAL IMPAIRMENT [None]
  - CAECITIS [None]
  - PANCYTOPENIA [None]
  - HYPOPHAGIA [None]
  - ILEUS [None]
  - DECREASED APPETITE [None]
  - DIARRHOEA [None]
  - HYPERBILIRUBINAEMIA [None]
